FAERS Safety Report 5500107-1 (Version None)
Quarter: 2007Q4

REPORT INFORMATION
  Report Type: 
  Country: None (occurrence: None)
  Receive Date: 20071024
  Receipt Date: 20071019
  Transmission Date: 20080405
  Serious: Yes (Life-Threatening)
  Sender: FDA-Public Use
  Company Number: 2007S1000186

PATIENT
  Age: 1 Month
  Sex: Female
  Weight: 0.99 kg

DRUGS (8)
  1. NITRIC OXIDE [Suspect]
     Indication: LUNG DISORDER
     Dosage: 5 PPM; CONT; INH
     Route: 055
     Dates: start: 20070913, end: 20071004
  2. NITRIC OXIDE [Suspect]
     Indication: PROPHYLAXIS
     Dosage: 5 PPM; CONT; INH
     Route: 055
     Dates: start: 20070913, end: 20071004
  3. MEROPENEM [Concomitant]
  4. TEICOPLANIN [Concomitant]
  5. PHENOBARBITAL TAB [Concomitant]
  6. MIDAZOLAM HCL [Concomitant]
  7. NYSTATIN [Concomitant]
  8. CHLORAL HYDRATE [Concomitant]

REACTIONS (5)
  - ACINETOBACTER INFECTION [None]
  - APNOEA [None]
  - BRADYCARDIA [None]
  - NECROTISING COLITIS [None]
  - PNEUMATOSIS INTESTINALIS [None]
